FAERS Safety Report 8742937 (Version 2)
Quarter: 2012Q4

REPORT INFORMATION
  Report Type: 
  Country: US (occurrence: US)
  Receive Date: 20120824
  Receipt Date: 20120918
  Transmission Date: 20130627
  Serious: No
  Sender: FDA-Public Use
  Company Number: US-FRI-1000037949

PATIENT
  Age: 80 Year
  Sex: Male
  Weight: 68 kg

DRUGS (10)
  1. NAMENDA [Suspect]
     Indication: FAHR^S DISEASE
     Dosage: 5 mg
     Route: 048
     Dates: start: 20120703, end: 20120709
  2. NAMENDA [Suspect]
     Dosage: 5 mg BID
     Route: 048
     Dates: start: 20120710, end: 20120716
  3. NAMENDA [Suspect]
     Dosage: 5 mg am, 10 mg pm
     Dates: start: 20120717, end: 20120723
  4. NAMENDA [Suspect]
     Indication: FAHR^S DISEASE
     Dosage: 10 mg BID
     Route: 048
     Dates: start: 20120724, end: 20120731
  5. CLONAZEPAM [Suspect]
     Indication: RAPID EYE MOVEMENTS SLEEP ABNORMAL
     Dosage: 0.5 mg QHS
     Dates: end: 20120816
  6. CLONAZEPAM [Suspect]
     Indication: RAPID EYE MOVEMENTS SLEEP ABNORMAL
     Dosage: 0.5 mg QHS
     Dates: start: 2012
  7. GALANTAMINE [Concomitant]
     Indication: FAHR^S DISEASE
  8. ASPIRIN [Concomitant]
     Indication: HYPERTENSION
  9. ATENOLOL [Concomitant]
     Indication: HYPERTENSION
  10. PLAVIX [Concomitant]
     Indication: HYPERTENSION

REACTIONS (8)
  - Amnesia [Unknown]
  - Dizziness [Unknown]
  - Confusional state [Unknown]
  - Thinking abnormal [Unknown]
  - Lethargy [Unknown]
  - Malaise [Unknown]
  - Tremor [Unknown]
  - Off label use [Recovered/Resolved]
